FAERS Safety Report 13042673 (Version 1)
Quarter: 2016Q4

REPORT INFORMATION
  Report Type: Spontaneous
  Country: ES (occurrence: ES)
  Receive Date: 20161219
  Receipt Date: 20161219
  Transmission Date: 20170207
  Serious: Yes (Hospitalization)
  Sender: FDA-Public Use
  Company Number: ES-ALLERGAN-1680881US

PATIENT
  Age: 2 Month
  Sex: Female
  Weight: 4.5 kg

DRUGS (1)
  1. COMBIGAN [Suspect]
     Active Substance: BRIMONIDINE TARTRATE\TIMOLOL MALEATE
     Indication: DEVELOPMENTAL GLAUCOMA
     Dosage: UNK GTT, UNK
     Route: 047
     Dates: start: 20161108, end: 20161108

REACTIONS (2)
  - Bradycardia [Unknown]
  - Infantile apnoea [Unknown]

NARRATIVE: CASE EVENT DATE: 20161108
